FAERS Safety Report 13629485 (Version 11)
Quarter: 2020Q2

REPORT INFORMATION
  Report Type: Report from Study
  Country: US (occurrence: US)
  Receive Date: 20170608
  Receipt Date: 20200605
  Transmission Date: 20200713
  Serious: Yes (Other)
  Sender: FDA-Public Use
  Company Number: US-ALEXION PHARMACEUTICALS INC.-A201706231

PATIENT
  Sex: Female

DRUGS (6)
  1. STRENSIQ [Suspect]
     Active Substance: ASFOTASE ALFA
     Dosage: UNK
     Route: 058
  2. STRENSIQ [Suspect]
     Active Substance: ASFOTASE ALFA
     Indication: HYPOPHOSPHATASIA
     Dosage: UNK
     Route: 058
  3. STRENSIQ [Suspect]
     Active Substance: ASFOTASE ALFA
     Dosage: UNK
     Route: 058
  4. STRENSIQ [Suspect]
     Active Substance: ASFOTASE ALFA
     Dosage: UNK
     Route: 058
  5. STRENSIQ [Suspect]
     Active Substance: ASFOTASE ALFA
     Dosage: UNK
     Route: 058
  6. STRENSIQ [Suspect]
     Active Substance: ASFOTASE ALFA
     Dosage: UNK
     Route: 058

REACTIONS (17)
  - Abdominal pain [Not Recovered/Not Resolved]
  - Drug ineffective [Unknown]
  - Gingival bleeding [Recovered/Resolved]
  - Arthralgia [Not Recovered/Not Resolved]
  - Oral pain [Recovered/Resolved]
  - Hypoaesthesia [Unknown]
  - Dermatitis acneiform [Unknown]
  - Skin discolouration [Unknown]
  - Pain in extremity [Not Recovered/Not Resolved]
  - Pain [Unknown]
  - Burning sensation [Not Recovered/Not Resolved]
  - Rash [Unknown]
  - Myalgia [Not Recovered/Not Resolved]
  - Joint swelling [Unknown]
  - Bone pain [Not Recovered/Not Resolved]
  - Peripheral swelling [Unknown]
  - Vertigo [Unknown]

NARRATIVE: CASE EVENT DATE: 201705
